FAERS Safety Report 17405726 (Version 2)
Quarter: 2020Q1

REPORT INFORMATION
  Report Type: Spontaneous
  Country: DE (occurrence: DE)
  Receive Date: 20200212
  Receipt Date: 20200310
  Transmission Date: 20200409
  Serious: Yes (Other)
  Sender: FDA-Public Use
  Company Number: DE-LEO PHARMA-327773

PATIENT
  Sex: Male

DRUGS (1)
  1. PICATO [Suspect]
     Active Substance: INGENOL MEBUTATE
     Indication: BASAL CELL CARCINOMA
     Dosage: NOT REPORTED

REACTIONS (5)
  - Disease recurrence [Unknown]
  - Drug ineffective for unapproved indication [Unknown]
  - Basal cell carcinoma [Unknown]
  - Application site scab [Recovered/Resolved]
  - Product use in unapproved indication [Unknown]
